FAERS Safety Report 8394108-6 (Version None)
Quarter: 2012Q1

REPORT INFORMATION
  Report Type: 
  Country: None (occurrence: None)
  Receive Date: 20120323
  Receipt Date: 20110719
  Transmission Date: 20120608
  Serious: Yes (Hospitalization)
  Sender: FDA-Public Use
  Company Number: 163-21880-11050872

PATIENT
  Age: 76 Year
  Sex: Male
  Weight: 92.9874 kg

DRUGS (20)
  1. ACCUPRIL (QUINAPRIL HYDROCHLORIDE) (UNKNOWN) [Concomitant]
  2. CIPRO (CIPROFLOXACIN) (TABLETS) [Concomitant]
  3. TRIAMTERENE-HYDROCHLOROTHIAZIDE (DYAZIDE) (TABLETS) [Concomitant]
  4. CITRACAL (CALCIUM CITRATE) (UNKNOWN) [Concomitant]
  5. VITAMIN D (ERGOCALCIFEROL) (UNKNOWN) [Concomitant]
  6. ASPIRIN [Concomitant]
  7. DECADRON [Concomitant]
  8. PROSCAR (FINASTERIDE) (TABLETS) [Concomitant]
  9. LOTREL (LOTREL) (CAPSULES) [Concomitant]
  10. QUINAPRIL (QUINAPRIL) (TABLETS) [Concomitant]
  11. ZOFRAN [Concomitant]
  12. MAXZIDE (DYAZIDE) (UNKNOWN) [Concomitant]
  13. TRAMADOL (TRAMADOL) (TABLETS) [Concomitant]
  14. OXYCONTIN [Concomitant]
  15. PERCOCET [Concomitant]
  16. ZOMETA [Concomitant]
  17. FLOMAX [Concomitant]
  18. STOOL SOFTENER (DOCUSATE SODIUM) (UNKNOWN) [Concomitant]
  19. REVLIMID [Suspect]
     Indication: MULTIPLE MYELOMA
     Dosage: 25 MG, DAILY FOR 21 DAYS, PO
     Route: 048
     Dates: start: 20110413
  20. NEXIUM [Concomitant]

REACTIONS (4)
  - FATIGUE [None]
  - DYSPNOEA [None]
  - OEDEMA [None]
  - SOMNOLENCE [None]
